FAERS Safety Report 12944935 (Version 2)
Quarter: 2016Q4

REPORT INFORMATION
  Report Type: Report from Study
  Country: None (occurrence: CA)
  Receive Date: 20161115
  Receipt Date: 20161229
  Transmission Date: 20170207
  Serious: Yes (Other)
  Sender: FDA-Public Use
  Company Number: CA-ABBVIE-16K-028-1778637-00

PATIENT
  Sex: Male
  Weight: 89.44 kg

DRUGS (1)
  1. HUMIRA [Suspect]
     Active Substance: ADALIMUMAB
     Indication: CROHN^S DISEASE
     Route: 058
     Dates: start: 20160824

REACTIONS (2)
  - Device breakage [Unknown]
  - Bruxism [Unknown]

NARRATIVE: CASE EVENT DATE: 2016
